FAERS Safety Report 5598431-X (Version None)
Quarter: 2008Q1

REPORT INFORMATION
  Report Type: 
  Country: None (occurrence: None)
  Receive Date: 20080122
  Receipt Date: 20080116
  Transmission Date: 20080703
  Serious: Yes (Hospitalization)
  Sender: FDA-Public Use
  Company Number: FR-ASTRAZENECA-2008CG00113

PATIENT
  Age: 58 Year
  Sex: Female

DRUGS (6)
  1. CRESTOR [Suspect]
     Route: 048
     Dates: start: 20060301
  2. TEMERIT [Suspect]
     Route: 048
     Dates: start: 20060301
  3. PLAVIX [Suspect]
     Route: 048
     Dates: start: 20060301
  4. VALSARTAN [Suspect]
     Route: 048
     Dates: start: 20060301
  5. KARDEGIC [Suspect]
     Route: 048
     Dates: start: 20060301
  6. PACLITAXEL [Suspect]
     Route: 022
     Dates: start: 20060301

REACTIONS (1)
  - SCLERODERMA [None]
